FAERS Safety Report 6780175-X (Version None)
Quarter: 2010Q2

REPORT INFORMATION
  Report Type: 
  Country: None (occurrence: None)
  Receive Date: 20100618
  Receipt Date: 20100615
  Transmission Date: 20101027
  Serious: Yes (Other)
  Sender: FDA-Public Use
  Company Number: US-ELI_LILLY_AND_COMPANY-US200804002386

PATIENT
  Sex: Female
  Weight: 108.39 kg

DRUGS (13)
  1. BYETTA [Suspect]
     Indication: TYPE 2 DIABETES MELLITUS
     Dosage: 5 UG, 2/D
     Route: 058
     Dates: start: 20050501, end: 20070101
  2. BYETTA [Suspect]
     Dosage: 10 UG, 2/D
     Route: 058
     Dates: start: 20070101, end: 20080801
  3. GLIPIZIDE [Concomitant]
     Indication: TYPE 2 DIABETES MELLITUS
     Dosage: UNK, DAILY (1/D)
     Route: 048
  4. HYZAAR [Concomitant]
     Indication: HYPERTENSION
     Dosage: UNK, DAILY (1/D)
     Route: 048
     Dates: start: 20030101
  5. ATENOLOL [Concomitant]
     Indication: HYPERTENSION
     Dosage: 0.5 D/F, 2/D
     Route: 048
     Dates: start: 19980101
  6. LOVAZA [Concomitant]
     Dosage: UNK, DAILY (1/D)
     Route: 048
  7. VITAMIN D [Concomitant]
     Dosage: UNK, DAILY (1/D)
     Route: 048
  8. JANUVIA [Concomitant]
     Indication: TYPE 2 DIABETES MELLITUS
     Dosage: 100 MG, DAILY (1/D)
     Dates: start: 20080801
  9. GLIMEPIRIDE [Concomitant]
     Indication: TYPE 2 DIABETES MELLITUS
     Dosage: UNK, UNKNOWN
     Route: 048
     Dates: start: 20080801
  10. PRAVASTATIN [Concomitant]
     Dosage: 20 MG, DAILY (1/D)
     Route: 048
     Dates: start: 20080801
  11. CO-Q10 [Concomitant]
     Dosage: UNK, DAILY (1/D)
     Route: 048
     Dates: start: 20080801
  12. MEPERIDINE HCL [Concomitant]
     Indication: PAIN
     Dosage: 50 MG, AS NEEDED
  13. LISINOPRIL [Concomitant]
     Dosage: UNK, DAILY (1/D)

REACTIONS (5)
  - DIZZINESS [None]
  - DRUG INEFFECTIVE [None]
  - NAUSEA [None]
  - PANCREATITIS [None]
  - WEIGHT DECREASED [None]
